FAERS Safety Report 9475727 (Version 1)
Quarter: 2013Q3

REPORT INFORMATION
  Report Type: Spontaneous
  Country: US (occurrence: None)
  Receive Date: 20130821
  Receipt Date: 20130821
  Transmission Date: 20140515
  Serious: Yes (Life-Threatening, Disabling, Other)
  Sender: FDA-Public Use
  Company Number: 2013AP007397

PATIENT
  Age: 21 Year
  Sex: Male

DRUGS (4)
  1. ALPRAZOLAM [Suspect]
     Route: 048
  2. TRAMADOL HYDROCHLORIDE TABLETS [Suspect]
     Route: 048
  3. PROPOFOL [Suspect]
     Indication: SEDATION
  4. DOPAMINE [Suspect]
     Indication: HYPERTENSION

REACTIONS (10)
  - Hypotension [None]
  - Hypothermia [None]
  - Acidosis [None]
  - Hyperkalaemia [None]
  - Renal failure acute [None]
  - Rhabdomyolysis [None]
  - Overdose [None]
  - Unresponsive to stimuli [None]
  - Immobile [None]
  - Brugada syndrome [None]
